FAERS Safety Report 5486614-9 (Version None)
Quarter: 2007Q4

REPORT INFORMATION
  Report Type: 
  Country: None (occurrence: None)
  Receive Date: 20071016
  Receipt Date: 20071004
  Transmission Date: 20080405
  Serious: Yes (Hospitalization)
  Sender: FDA-Public Use
  Company Number: US-BRISTOL-MYERS SQUIBB COMPANY-13929658

PATIENT
  Sex: Male
  Weight: 68 kg

DRUGS (2)
  1. COUMADIN [Suspect]
     Indication: HEART VALVE REPLACEMENT
     Dosage: 5MG DAILY FOR 4 DAYS; 7.5MG DAILY FOR 3 DAYS.
     Route: 048
     Dates: start: 20040101
  2. COREG [Concomitant]
     Dosage: 1/2 TAB IN THE MORNING AND 1/2 TAB IN THE EVENING.
     Route: 048

REACTIONS (7)
  - ANOREXIA [None]
  - COMPARTMENT SYNDROME [None]
  - DYSGEUSIA [None]
  - HERPES ZOSTER [None]
  - INTERNATIONAL NORMALISED RATIO FLUCTUATION [None]
  - PAROSMIA [None]
  - WEIGHT DECREASED [None]
